FAERS Safety Report 16817634 (Version 2)
Quarter: 2019Q4

REPORT INFORMATION
  Report Type: Report from Study
  Country: US (occurrence: US)
  Receive Date: 20190917
  Receipt Date: 20191016
  Transmission Date: 20200122
  Serious: Yes (Hospitalization, Other)
  Sender: FDA-Public Use
  Company Number: US-GILEAD-2019-0428098

PATIENT
  Sex: Female
  Weight: 63.49 kg

DRUGS (1)
  1. EMTRICITABINE/TENOFOVIR DISOPROXIL FUMARATE [Suspect]
     Active Substance: EMTRICITABINE\TENOFOVIR DISOPROXIL FUMARATE
     Indication: HIV INFECTION
     Dosage: 500 MG, QD
     Route: 048
     Dates: end: 20140530

REACTIONS (11)
  - Pain [Recovered/Resolved]
  - Peroneal nerve palsy [Recovered/Resolved]
  - Osteonecrosis [Unknown]
  - Gait inability [Not Recovered/Not Resolved]
  - Wheelchair user [Not Recovered/Not Resolved]
  - Leg amputation [Not Recovered/Not Resolved]
  - Bone disorder [Unknown]
  - Knee operation [Not Recovered/Not Resolved]
  - Dysstasia [Recovered/Resolved]
  - Nerve compression [Not Recovered/Not Resolved]
  - Orthosis user [Recovered/Resolved]

NARRATIVE: CASE EVENT DATE: 2015
